FAERS Safety Report 21933899 (Version 1)
Quarter: 2023Q1

REPORT INFORMATION
  Report Type: Spontaneous
  Country: FR (occurrence: FR)
  Receive Date: 20230201
  Receipt Date: 20230201
  Transmission Date: 20230418
  Serious: Yes (Hospitalization, Other)
  Sender: FDA-Public Use
  Company Number: FR-AFSSAPS-RN2023000087

PATIENT
  Age: 48 Year
  Sex: Male

DRUGS (6)
  1. ACETAMINOPHEN [Suspect]
     Active Substance: ACETAMINOPHEN
     Indication: Suicide attempt
     Dosage: 30 GRAM
     Route: 048
     Dates: start: 20230106, end: 20230106
  2. Lamaline [Concomitant]
     Indication: Product used for unknown indication
     Dosage: 4 DOSAGE FORM
     Route: 048
     Dates: start: 20230106, end: 20230106
  3. ALPRAZOLAM [Concomitant]
     Active Substance: ALPRAZOLAM
     Indication: Product used for unknown indication
     Dosage: 0.5 MILLIGRAM
     Route: 048
     Dates: start: 20230106
  4. MIRTAZAPINE [Concomitant]
     Active Substance: MIRTAZAPINE
     Indication: Product used for unknown indication
     Dosage: 30 MILLIGRAM (2CP DE 15 MG)
     Route: 048
     Dates: start: 20230106
  5. OMEPRAZOLE [Concomitant]
     Active Substance: OMEPRAZOLE
     Indication: Product used for unknown indication
     Dosage: 40 MILLIGRAM (2 CP DE 20 MG)
     Route: 048
     Dates: start: 20230106
  6. ZOPICLONE [Concomitant]
     Active Substance: ZOPICLONE
     Indication: Product used for unknown indication
     Dosage: 15 MILLIGRAM (2 CP DE 7.5 MG)
     Route: 048
     Dates: start: 20230106

REACTIONS (3)
  - Hepatitis acute [Recovering/Resolving]
  - Pancreatitis [Recovering/Resolving]
  - Poisoning deliberate [Recovered/Resolved]

NARRATIVE: CASE EVENT DATE: 20230106
